FAERS Safety Report 7826701-0 (Version None)
Quarter: 2011Q4

REPORT INFORMATION
  Report Type: 
  Country: None (occurrence: None)
  Receive Date: 20111020
  Receipt Date: 20110803
  Transmission Date: 20120403
  Serious: No
  Sender: FDA-Public Use
  Company Number: US-MYLANLABS-2011S1016295

PATIENT

DRUGS (1)
  1. CLONIDINE [Suspect]
     Dosage: QWEEK
     Route: 062
     Dates: start: 20101201, end: 20110701

REACTIONS (1)
  - HYPERHIDROSIS [None]
